FAERS Safety Report 24425310 (Version 1)
Quarter: 2024Q4

REPORT INFORMATION
  Report Type: Spontaneous
  Country: BG (occurrence: BG)
  Receive Date: 20241011
  Receipt Date: 20241011
  Transmission Date: 20250114
  Serious: Yes (Hospitalization, Other)
  Sender: AMGEN
  Company Number: BG-AMGEN-BGRSP2024196690

PATIENT
  Age: 76 Year
  Sex: Female

DRUGS (9)
  1. PROLIA [Suspect]
     Active Substance: DENOSUMAB
     Indication: Product used for unknown indication
     Dosage: UNK
     Route: 065
     Dates: start: 20220321
  2. DARBEPOETIN ALFA [Suspect]
     Active Substance: DARBEPOETIN ALFA
     Indication: Product used for unknown indication
     Dosage: UNK
     Route: 065
     Dates: start: 20220321
  3. FILGRASTIM [Suspect]
     Active Substance: FILGRASTIM
     Indication: Neutropenia
     Dosage: UNK
     Route: 065
     Dates: start: 2022
  4. CARFILZOMIB [Suspect]
     Active Substance: CARFILZOMIB
     Indication: Plasma cell myeloma
     Dosage: UNK
     Route: 065
     Dates: start: 20220804
  5. LENALIDOMIDE [Concomitant]
     Active Substance: LENALIDOMIDE
     Dosage: UNK
  6. VITAMIN B12 [Concomitant]
     Active Substance: CYANOCOBALAMIN
     Indication: Anaemia
     Dosage: UNK
  7. DEXAMETHASONE [Concomitant]
     Active Substance: DEXAMETHASONE
     Indication: Plasma cell myeloma
  8. DARATUMUMAB [Concomitant]
     Active Substance: DARATUMUMAB
     Dosage: UNK
  9. CYCLOPHOSPHAMIDE\BORTEZOMIB\DEXAMETHASONE [Concomitant]
     Active Substance: CYCLOPHOSPHAMIDE\BORTEZOMIB\DEXAMETHASONE
     Dosage: UNK
     Dates: start: 20220321

REACTIONS (13)
  - Plasma cell myeloma [Recovering/Resolving]
  - Chronic kidney disease [Unknown]
  - Pathological fracture [Recovering/Resolving]
  - Thoracic vertebral fracture [Unknown]
  - Escherichia sepsis [Unknown]
  - Rash vesicular [Recovered/Resolved]
  - Neutropenia [Recovered/Resolved]
  - Thrombocytopenia [Unknown]
  - Cerebral atrophy [Unknown]
  - Cerebral microangiopathy [Unknown]
  - Diarrhoea [Unknown]
  - Therapy non-responder [Unknown]
  - Hypocalcaemia [Unknown]

NARRATIVE: CASE EVENT DATE: 20220101
